FAERS Safety Report 5165739-1 (Version None)
Quarter: 2006Q4

REPORT INFORMATION
  Report Type: 
  Country: None (occurrence: None)
  Receive Date: 20061128
  Receipt Date: 20061117
  Transmission Date: 20070319
  Serious: Yes (Hospitalization, Other)
  Sender: FDA-Public Use
  Company Number: 2006SP003463

PATIENT
  Age: 71 Year
  Sex: Female
  Weight: 62 kg

DRUGS (9)
  1. INTRON A [Suspect]
     Indication: RENAL CELL CARCINOMA STAGE UNSPECIFIED
     Dosage: IM
     Route: 030
  2. SUMIFERON [Concomitant]
  3. BUP-4 [Concomitant]
  4. TAGAMET [Concomitant]
  5. LOXONIN [Concomitant]
  6. PRAVASTATIN SODIUM [Concomitant]
  7. AMARYL [Concomitant]
  8. MUCOSOLVAN [Concomitant]
  9. MUCODYNE [Concomitant]

REACTIONS (3)
  - MALIGNANT PLEURAL EFFUSION [None]
  - PLEURAL EFFUSION [None]
  - PLEURISY [None]
